FAERS Safety Report 10573542 (Version 1)
Quarter: 2014Q4

REPORT INFORMATION
  Report Type: Spontaneous
  Country: US (occurrence: US)
  Receive Date: 20141110
  Receipt Date: 20141110
  Transmission Date: 20150529
  Serious: Yes (Hospitalization, Other)
  Sender: FDA-Public Use
  Company Number: US-SA-2014SA151763

PATIENT
  Age: 62 Year
  Sex: Male

DRUGS (2)
  1. ANAESTHETICS, GENERAL [Concomitant]
     Active Substance: UNSPECIFIED INGREDIENT
     Route: 008
  2. ENOXAPARIN SODIUM. [Suspect]
     Active Substance: ENOXAPARIN SODIUM
     Indication: THROMBOSIS PROPHYLAXIS
     Route: 065

REACTIONS (8)
  - Back pain [Unknown]
  - Subarachnoid haemorrhage [Recovering/Resolving]
  - Urinary retention [Recovering/Resolving]
  - Spinal epidural haematoma [Unknown]
  - Pain in extremity [Unknown]
  - Intraventricular haemorrhage [Recovering/Resolving]
  - Cauda equina syndrome [Recovering/Resolving]
  - Mental status changes [Recovering/Resolving]
